FAERS Safety Report 8514933-8 (Version None)
Quarter: 2012Q3

REPORT INFORMATION
  Report Type: 
  Country: None (occurrence: None)
  Receive Date: 20120711
  Receipt Date: 20120711
  Transmission Date: 20120928
  Serious: Yes (Other)
  Sender: FDA-Public Use
  Company Number: None

PATIENT
  Sex: Female
  Weight: 63.5036 kg

DRUGS (10)
  1. SINGULAIR [Concomitant]
  2. ZYRTEC [Concomitant]
  3. CA +D [Concomitant]
  4. HYDROCORTISONE [Suspect]
     Indication: ADRENOGENITAL SYNDROME
     Dosage: 17.5 MG/ DIV QID PO SINCE PT WAS 8 YRS OLD
     Route: 048
  5. NUVIGIL [Suspect]
     Indication: CATAPLEXY
     Dosage: NUVIGIL 150 MG QAM PO
     Route: 048
     Dates: start: 20120401
  6. NUVIGIL [Suspect]
     Indication: NARCOLEPSY
     Dosage: NUVIGIL 150 MG QAM PO
     Route: 048
     Dates: start: 20120401
  7. XYREM [Suspect]
     Dates: start: 20120401
  8. LEVOTHYROXINE SODIUM [Concomitant]
  9. MULTIVITAMIN (PRENATAL) [Concomitant]
  10. FLUDROCORTISONE ACETATE [Suspect]
     Indication: ADRENOGENITAL SYNDROME
     Dosage: 0.1 MG / D DIV QID PO SINCE PT WAS 8 YRS OLD
     Route: 048

REACTIONS (3)
  - ADRENOCORTICAL INSUFFICIENCY ACUTE [None]
  - TREATMENT NONCOMPLIANCE [None]
  - DRUG INTERACTION [None]
